FAERS Safety Report 10461265 (Version 1)
Quarter: 2014Q3

REPORT INFORMATION
  Report Type: Report from Study
  Country: US (occurrence: US)
  Receive Date: 20140918
  Receipt Date: 20140918
  Transmission Date: 20150326
  Serious: Yes (Other)
  Sender: FDA-Public Use
  Company Number: PHEH2014US018575

PATIENT
  Sex: Female

DRUGS (1)
  1. GILENYA [Suspect]
     Active Substance: FINGOLIMOD HYDROCHLORIDE
     Indication: MULTIPLE SCLEROSIS
     Dosage: 0.5 MG, DAILY
     Route: 048

REACTIONS (5)
  - Neutrophil count decreased [Unknown]
  - Monocyte count increased [Unknown]
  - Blood potassium increased [Unknown]
  - Lymphocyte count decreased [Unknown]
  - Blood urea nitrogen/creatinine ratio increased [Unknown]
